FAERS Safety Report 9812550 (Version 1)
Quarter: 2014Q1

REPORT INFORMATION
  Report Type: Report from Study
  Country: US (occurrence: US)
  Receive Date: 20140113
  Receipt Date: 20140113
  Transmission Date: 20141002
  Serious: Yes (Other)
  Sender: FDA-Public Use
  Company Number: US-ROCHE-1332327

PATIENT
  Sex: Male
  Weight: 81.1 kg

DRUGS (3)
  1. NUTROPIN AQ [Suspect]
     Indication: HYPOPITUITARISM
     Dosage: 5 MG/ML, INJECT INTO SKIN EVERY MORNING
     Route: 058
  2. LEVOTHYROXINE [Concomitant]
     Indication: PRODUCT USED FOR UNKNOWN INDICATION
     Dosage: EVERY MORNING
     Route: 048
  3. CORTEF [Concomitant]
     Indication: PRODUCT USED FOR UNKNOWN INDICATION
     Route: 048

REACTIONS (1)
  - Weight increased [Unknown]
